FAERS Safety Report 11384035 (Version 1)
Quarter: 2015Q3

REPORT INFORMATION
  Report Type: Spontaneous
  Country: GB (occurrence: GB)
  Receive Date: 20150815
  Receipt Date: 20150815
  Transmission Date: 20151125
  Serious: Yes (Other)
  Sender: FDA-Public Use
  Company Number: GB-CIPLA LTD.-2015GB06488

PATIENT

DRUGS (10)
  1. TADALAFIL [Concomitant]
     Active Substance: TADALAFIL
     Dosage: USE AS DIRECTED
     Route: 065
     Dates: start: 20150727, end: 20150728
  2. METFORMIN [Concomitant]
     Active Substance: METFORMIN HYDROCHLORIDE
     Dosage: 1 DF, BID
     Route: 065
     Dates: start: 20141121
  3. FLEXITOL HEEL BALM [Concomitant]
     Indication: DRY SKIN
     Dosage: 1 DF, BID
     Route: 065
     Dates: start: 20150728
  4. CALCIPOTRIOL [Concomitant]
     Active Substance: CALCIPOTRIENE
     Dosage: 1 DF, QD
     Route: 065
     Dates: start: 20150410
  5. GLICLAZIDE [Concomitant]
     Active Substance: GLICLAZIDE
     Dosage: 2 DF, BID BEFORE BREAKFAST AND DINNER
     Route: 065
     Dates: start: 20141121
  6. PIOGLITAZONE. [Concomitant]
     Active Substance: PIOGLITAZONE
     Dosage: 1 DF, QD
     Route: 065
     Dates: start: 20141121
  7. AMLODIPINE [Suspect]
     Active Substance: AMLODIPINE BESYLATE
     Dosage: UNK
     Route: 065
     Dates: start: 20141121
  8. INDAPAMIDE. [Concomitant]
     Active Substance: INDAPAMIDE
     Dosage: 1 DF, QD EACH MORNING
     Route: 065
     Dates: start: 20150727
  9. SILDENAFIL. [Concomitant]
     Active Substance: SILDENAFIL
     Dosage: USE AS DIRECTED
     Route: 065
     Dates: start: 20150604, end: 20150702
  10. SIMVASTATIN. [Concomitant]
     Active Substance: SIMVASTATIN
     Dosage: 1 DF, QD AT NIGHT
     Route: 065
     Dates: start: 20141121

REACTIONS (2)
  - Gingivitis [Unknown]
  - Gingival hyperplasia [Unknown]

NARRATIVE: CASE EVENT DATE: 20150728
